FAERS Safety Report 19767514 (Version 1)
Quarter: 2021Q3

REPORT INFORMATION
  Report Type: Spontaneous
  Country: US (occurrence: US)
  Receive Date: 20210831
  Receipt Date: 20210831
  Transmission Date: 20211014
  Serious: Yes (Other)
  Sender: FDA-Public Use
  Company Number: US-GLAXOSMITHKLINE-US2021GSK180540

PATIENT
  Sex: Female

DRUGS (8)
  1. RANITIDINE. [Suspect]
     Active Substance: RANITIDINE
     Indication: GASTROOESOPHAGEAL REFLUX DISEASE
     Dosage: 150 MG, QD
     Route: 065
     Dates: start: 200005, end: 202003
  2. RANITIDINE. [Suspect]
     Active Substance: RANITIDINE
     Indication: OESOPHAGEAL SPASM
     Dosage: 300 MG, QD
     Route: 065
     Dates: start: 200005, end: 202003
  3. ZANTAC [Suspect]
     Active Substance: RANITIDINE HYDROCHLORIDE
     Indication: GASTROOESOPHAGEAL REFLUX DISEASE
     Dosage: 150 MG, QD
     Route: 065
     Dates: start: 200005, end: 202003
  4. RANITIDINE. [Suspect]
     Active Substance: RANITIDINE
     Indication: GASTROOESOPHAGEAL REFLUX DISEASE
     Dosage: 150 MG, QD
     Route: 065
     Dates: start: 200005, end: 202003
  5. ZANTAC [Suspect]
     Active Substance: RANITIDINE HYDROCHLORIDE
     Indication: OESOPHAGEAL SPASM
     Dosage: 300 MG, QD
     Route: 065
     Dates: start: 200005, end: 202003
  6. ZANTAC [Suspect]
     Active Substance: RANITIDINE HYDROCHLORIDE
     Indication: OESOPHAGEAL SPASM
     Dosage: 300 MG, QD
     Route: 065
     Dates: start: 200005, end: 202003
  7. RANITIDINE. [Suspect]
     Active Substance: RANITIDINE
     Indication: OESOPHAGEAL SPASM
     Dosage: 300 MG, QD
     Route: 065
     Dates: start: 200005, end: 202003
  8. ZANTAC [Suspect]
     Active Substance: RANITIDINE HYDROCHLORIDE
     Indication: GASTROOESOPHAGEAL REFLUX DISEASE
     Dosage: 150 MG, QD
     Route: 065
     Dates: start: 200005, end: 202003

REACTIONS (1)
  - Renal cancer [Unknown]
